FAERS Safety Report 16178715 (Version 1)
Quarter: 2019Q2

REPORT INFORMATION
  Report Type: Spontaneous
  Country: RU (occurrence: RU)
  Receive Date: 20190410
  Receipt Date: 20190410
  Transmission Date: 20190711
  Serious: Yes (Hospitalization, Other)
  Sender: FDA-Public Use
  Company Number: RU-AUROBINDO-AUR-APL-2019-020106

PATIENT

DRUGS (15)
  1. CLOPIDOGREL [Concomitant]
     Active Substance: CLOPIDOGREL BISULFATE
     Indication: CARDIAC FAILURE CHRONIC
     Dosage: 75 MILLIGRAM
     Route: 065
     Dates: start: 20160912
  2. ACETYLSALICYLIC ACID [Suspect]
     Active Substance: ASPIRIN
     Indication: CARDIAC FAILURE CHRONIC
     Dosage: 100 MILLIGRAM
     Route: 065
     Dates: start: 20160912
  3. ENOXAPARIN [Concomitant]
     Active Substance: ENOXAPARIN
     Indication: CARDIAC FAILURE CHRONIC
     Dosage: UNK
     Route: 065
     Dates: start: 201611
  4. EPLERENONE. [Concomitant]
     Active Substance: EPLERENONE
     Indication: CARDIAC FAILURE CHRONIC
     Dosage: 25?50 MG/DAY
     Route: 065
     Dates: start: 20160912
  5. ROSUVASTATIN. [Concomitant]
     Active Substance: ROSUVASTATIN
     Indication: CARDIAC FAILURE CHRONIC
     Dosage: 20 MILLIGRAM, ONCE A DAY
     Route: 065
  6. KETOPROFEN. [Suspect]
     Active Substance: KETOPROFEN
     Indication: OSTEOCHONDROSIS
     Dosage: 100 MILLIGRAM, ONCE A DAY
     Route: 030
     Dates: start: 201706, end: 2017
  7. EPLERENONE. [Concomitant]
     Active Substance: EPLERENONE
     Dosage: 50 MILLIGRAM
     Route: 065
     Dates: start: 201611
  8. RAMIPRIL. [Concomitant]
     Active Substance: RAMIPRIL
     Indication: CARDIAC FAILURE CHRONIC
     Dosage: 5?10 MG
     Route: 065
     Dates: start: 20160912
  9. RAMIPRIL. [Concomitant]
     Active Substance: RAMIPRIL
     Dosage: 5 MG WITH DOSE TITRATION UP TO 10 MG
     Route: 065
     Dates: start: 201611
  10. PANTOPRAZOLE [Concomitant]
     Active Substance: PANTOPRAZOLE
     Indication: PRODUCT USED FOR UNKNOWN INDICATION
     Dosage: 20 MILLIGRAM, ONCE A DAY
     Route: 065
     Dates: start: 201706
  11. MELOXICAM TABLET [Suspect]
     Active Substance: MELOXICAM
     Dosage: AFTER THE END OF THE COURSE
     Route: 065
     Dates: start: 2017, end: 2017
  12. MELOXICAM TABLET [Suspect]
     Active Substance: MELOXICAM
     Indication: OSTEOCHONDROSIS
     Dosage: 15 MILLIGRAM, ONCE A DAY
     Route: 065
     Dates: start: 2017, end: 2017
  13. BISOPROLOL [Concomitant]
     Active Substance: BISOPROLOL
     Indication: CARDIAC FAILURE CHRONIC
     Dosage: 5?10 MG
     Route: 065
     Dates: start: 20160912
  14. RABEPRAZOLE [Concomitant]
     Active Substance: RABEPRAZOLE
     Indication: PRODUCT USED FOR UNKNOWN INDICATION
     Dosage: UNK
     Route: 065
     Dates: start: 201611
  15. MELOXICAM TABLET [Suspect]
     Active Substance: MELOXICAM
     Dosage: 15 MILLIGRAM, ONCE A DAY
     Route: 030
     Dates: start: 201706, end: 2017

REACTIONS (6)
  - Angina unstable [Recovering/Resolving]
  - Dyspnoea [Recovering/Resolving]
  - Condition aggravated [Recovering/Resolving]
  - Exercise tolerance decreased [Recovering/Resolving]
  - Arterial stenosis [Recovering/Resolving]
  - Coronary artery stenosis [Recovering/Resolving]

NARRATIVE: CASE EVENT DATE: 201611
